FAERS Safety Report 6714051-5 (Version None)
Quarter: 2010Q2

REPORT INFORMATION
  Report Type: 
  Country: None (occurrence: None)
  Receive Date: 20100506
  Receipt Date: 20100505
  Transmission Date: 20101027
  Serious: Yes (Death)
  Sender: FDA-Public Use
  Company Number: GB-ROXANE LABORATORIES, INC.-2010-RO-00525RO

PATIENT
  Age: 31 Year
  Sex: Female

DRUGS (6)
  1. MORPHINE [Suspect]
     Indication: SUICIDE ATTEMPT
     Dosage: 420 MG
  2. MORPHINE [Suspect]
  3. MORPHINE [Suspect]
  4. DIAZEPAM [Suspect]
     Indication: SUICIDE ATTEMPT
  5. TEMAZEPAM [Suspect]
     Indication: SUICIDE ATTEMPT
  6. ZOPICLONE [Suspect]
     Indication: SUICIDE ATTEMPT

REACTIONS (1)
  - DRUG TOXICITY [None]
